FAERS Safety Report 9376622 (Version 1)
Quarter: 2013Q3

REPORT INFORMATION
  Report Type: Spontaneous
  Country: US (occurrence: US)
  Receive Date: 20130701
  Receipt Date: 20130701
  Transmission Date: 20140515
  Serious: Yes (Life-Threatening, Hospitalization)
  Sender: FDA-Public Use
  Company Number: US-BAYER-2013-080073

PATIENT
  Age: 18 Year
  Sex: Female
  Weight: 70.3 kg

DRUGS (8)
  1. YAZ [Suspect]
  2. ZITHROMAX [Concomitant]
  3. ROBITUSSIN [GUAIFENESIN] [Concomitant]
  4. AMOXIL [Concomitant]
     Dosage: UNK
     Dates: start: 20090325
  5. BIAXIN [Concomitant]
  6. HYDROXYZINE [Concomitant]
  7. PRENATAL VITAMINS [VIT C,VIT H,MIN NOS,VIT PP,RETINOL,VIT E,VIT B [Concomitant]
  8. LEVAQUIN [Concomitant]

REACTIONS (1)
  - Pulmonary embolism [None]
